FAERS Safety Report 4921502-5 (Version None)
Quarter: 2006Q1

REPORT INFORMATION
  Report Type: 
  Country: None (occurrence: None)
  Receive Date: 20060224
  Receipt Date: 20060214
  Transmission Date: 20060701
  Serious: Yes (Other)
  Sender: FDA-Public Use
  Company Number: PHNU2006DE00914

PATIENT
  Sex: Female
  Weight: 63 kg

DRUGS (2)
  1. ZOMETA [Suspect]
     Indication: MULTIPLE MYELOMA
     Dosage: 4 MG, QMO
     Route: 042
     Dates: start: 20020701, end: 20050701
  2. TRAMADOL [Concomitant]
     Indication: PAIN
     Dosage: 200 MG/DAY
     Route: 048
     Dates: start: 20040501

REACTIONS (4)
  - FISTULA [None]
  - OSTEOMYELITIS CHRONIC [None]
  - OSTEONECROSIS [None]
  - SKIN ULCER [None]
